FAERS Safety Report 8199057-4 (Version None)
Quarter: 2012Q1

REPORT INFORMATION
  Report Type: 
  Country: None (occurrence: None)
  Receive Date: 20120309
  Receipt Date: 20120305
  Transmission Date: 20120608
  Serious: Yes (Hospitalization)
  Sender: FDA-Public Use
  Company Number: GR-GLAXOSMITHKLINE-B0784768A

PATIENT
  Age: 50 Year
  Sex: Male

DRUGS (3)
  1. CORTISONE ACETATE [Concomitant]
     Route: 065
  2. ARIXTRA [Suspect]
     Indication: HEPARIN-INDUCED THROMBOCYTOPENIA
     Dosage: 7.5MG PER DAY
     Route: 065
  3. UNKNOWN DRUG [Concomitant]
     Route: 065

REACTIONS (2)
  - RETROPERITONEAL HAEMORRHAGE [None]
  - SHOCK [None]
